FAERS Safety Report 5717507-7 (Version None)
Quarter: 2008Q2

REPORT INFORMATION
  Report Type: 
  Country: None (occurrence: None)
  Receive Date: 20080425
  Receipt Date: 20080424
  Transmission Date: 20081010
  Serious: Yes (Other)
  Sender: FDA-Public Use
  Company Number: SE-JNJFOC-20080406158

PATIENT
  Age: 47 Year
  Sex: Female

DRUGS (1)
  1. HALDOL [Suspect]
     Indication: DRUG USE FOR UNKNOWN INDICATION

REACTIONS (4)
  - GOITRE [None]
  - PHARYNGOLARYNGEAL PAIN [None]
  - TARDIVE DYSKINESIA [None]
  - WEIGHT INCREASED [None]
